FAERS Safety Report 8059123-0 (Version None)
Quarter: 2012Q1

REPORT INFORMATION
  Report Type: 
  Country: None (occurrence: None)
  Receive Date: 20120120
  Receipt Date: 20120110
  Transmission Date: 20120608
  Serious: Yes (Hospitalization, Other)
  Sender: FDA-Public Use
  Company Number: JP-PFIZER INC-2011264422

PATIENT
  Age: 68 Year
  Sex: Female
  Weight: 48.5 kg

DRUGS (5)
  1. TALION [Concomitant]
     Indication: XERODERMA
     Dosage: UNK
     Route: 065
     Dates: start: 20111007, end: 20111018
  2. CELECOXIB [Suspect]
     Indication: ARTHRALGIA
  3. ANTIBIOTICS [Concomitant]
     Dosage: UNK
     Route: 048
  4. ACETAMINOPHEN [Suspect]
     Indication: NASOPHARYNGITIS
     Dosage: UNK
     Route: 048
     Dates: start: 20111006, end: 20111006
  5. CELECOXIB [Suspect]
     Indication: BACK PAIN
     Dosage: 100 MG, 2X/DAY
     Route: 048
     Dates: start: 20110901, end: 20111018

REACTIONS (4)
  - GENERALISED OEDEMA [None]
  - GENERALISED ERYTHEMA [None]
  - LOSS OF CONSCIOUSNESS [None]
  - ANAPHYLACTIC SHOCK [None]
